FAERS Safety Report 10582553 (Version 1)
Quarter: 2014Q4

REPORT INFORMATION
  Report Type: Spontaneous
  Country: IL (occurrence: IL)
  Receive Date: 20141113
  Receipt Date: 20141113
  Transmission Date: 20150529
  Serious: Yes (Life-Threatening, Other)
  Sender: FDA-Public Use
  Company Number: IL-ASTRAZENECA-2014SE84141

PATIENT
  Age: 40 Year
  Sex: Male

DRUGS (1)
  1. BRILINTA [Suspect]
     Active Substance: TICAGRELOR
     Indication: ACUTE MYOCARDIAL INFARCTION
     Route: 048

REACTIONS (7)
  - Syncope [Unknown]
  - Bradycardia [Unknown]
  - Asthenia [Unknown]
  - Sinus arrest [Unknown]
  - Coronary artery stenosis [Unknown]
  - Incontinence [Unknown]
  - Eye movement disorder [Unknown]
